FAERS Safety Report 10069148 (Version 1)
Quarter: 2014Q2

REPORT INFORMATION
  Report Type: Spontaneous
  Country: IT (occurrence: IT)
  Receive Date: 20140409
  Receipt Date: 20140409
  Transmission Date: 20141212
  Serious: Yes (Other)
  Sender: FDA-Public Use
  Company Number: PHHY2014IT040298

PATIENT
  Age: 32 Year
  Sex: Female
  Weight: 50 kg

DRUGS (4)
  1. TRAMADOL [Suspect]
     Indication: ABDOMINAL PAIN
     Route: 048
  2. TRAMADOL [Interacting]
     Route: 030
  3. CITALOPRAM [Interacting]
     Dosage: 1 DF, IN MORNING
  4. DIAZEPAM [Concomitant]

REACTIONS (23)
  - Depression [Not Recovered/Not Resolved]
  - Euphoric mood [Recovered/Resolved]
  - Dissociation [Recovered/Resolved]
  - Hypoaesthesia [Recovered/Resolved]
  - Weight decreased [Recovered/Resolved]
  - Abdominal pain [Recovered/Resolved]
  - Flushing [Recovered/Resolved]
  - Drug interaction [Unknown]
  - Drug abuse [Unknown]
  - Constipation [Recovered/Resolved]
  - Urinary retention [Recovered/Resolved]
  - Fatigue [Recovered/Resolved]
  - Decreased appetite [Recovered/Resolved]
  - Insomnia [Recovered/Resolved]
  - Tachycardia [Recovered/Resolved]
  - Drug withdrawal syndrome [Unknown]
  - Anxiety [Not Recovered/Not Resolved]
  - Agitation [Recovered/Resolved]
  - Asthenia [Recovered/Resolved]
  - Headache [Recovered/Resolved]
  - Hyperhidrosis [Recovered/Resolved]
  - Tremor [Recovered/Resolved]
  - Nausea [Recovered/Resolved]
